FAERS Safety Report 6641510-6 (Version None)
Quarter: 2010Q1

REPORT INFORMATION
  Report Type: 
  Country: None (occurrence: None)
  Receive Date: 20100318
  Receipt Date: 20100305
  Transmission Date: 20100710
  Serious: Yes (Other)
  Sender: FDA-Public Use
  Company Number: GB-WATSON-2010-02803

PATIENT

DRUGS (7)
  1. PRAVASTATIN SODIUM [Suspect]
     Indication: ATRIAL FIBRILLATION
     Dosage: 40 MG, DAILY
     Route: 048
     Dates: start: 20080301, end: 20090721
  2. PRAVASTATIN SODIUM [Suspect]
     Indication: BLOOD CHOLESTEROL INCREASED
  3. PRAVASTATIN SODIUM [Suspect]
     Indication: PROPHYLAXIS
  4. ATENOLOL [Concomitant]
     Indication: DRUG USE FOR UNKNOWN INDICATION
     Dosage: 100 MG, DAILY
     Route: 065
  5. BISOPROLOL FUMARATE [Concomitant]
     Indication: TRANSIENT ISCHAEMIC ATTACK
     Dosage: 1 1/4 MG, BID
     Route: 065
  6. RAMIPRIL [Concomitant]
     Indication: DRUG USE FOR UNKNOWN INDICATION
     Dosage: 2 1/2 MG, DAILY
     Route: 048
  7. WARFARIN SODIUM [Concomitant]
     Indication: ANTICOAGULANT THERAPY
     Dosage: 5 MG, DAILY
     Route: 048
     Dates: start: 20030206

REACTIONS (6)
  - ASTHENIA [None]
  - MUSCULAR WEAKNESS [None]
  - MUSCULOSKELETAL PAIN [None]
  - NERVE COMPRESSION [None]
  - PAIN [None]
  - WEIGHT DECREASED [None]
